FAERS Safety Report 4479860-4 (Version None)
Quarter: 2004Q3

REPORT INFORMATION
  Report Type: 
  Country: None (occurrence: None)
  Receive Date: 20040923
  Receipt Date: 20040615
  Transmission Date: 20050211
  Serious: No
  Sender: FDA-Public Use
  Company Number: USA040465007

PATIENT
  Age: 66 Year
  Sex: Female
  Weight: 82 kg

DRUGS (3)
  1. FORTEO [Suspect]
     Indication: OSTEOPOROSIS
     Dates: start: 20031201
  2. THYROID TAB [Concomitant]
  3. LEVOXYL [Concomitant]

REACTIONS (4)
  - ANXIETY [None]
  - NERVOUSNESS [None]
  - URINARY TRACT INFECTION [None]
  - WEIGHT INCREASED [None]
